FAERS Safety Report 6477736-4 (Version None)
Quarter: 2009Q4

REPORT INFORMATION
  Report Type: 
  Country: None (occurrence: None)
  Receive Date: 20091207
  Receipt Date: 20090123
  Transmission Date: 20100525
  Serious: No
  Sender: FDA-Public Use
  Company Number: US-AMGEN-KDL330169

PATIENT
  Sex: Female

DRUGS (2)
  1. ENBREL [Suspect]
     Indication: JUVENILE ARTHRITIS
     Route: 058
     Dates: start: 20000601
  2. PLAQUENIL [Concomitant]
     Route: 048

REACTIONS (3)
  - INFLUENZA [None]
  - INJECTION SITE PAIN [None]
  - JUVENILE ARTHRITIS [None]
